FAERS Safety Report 5371327-4 (Version None)
Quarter: 2007Q2

REPORT INFORMATION
  Report Type: 
  Country: None (occurrence: None)
  Receive Date: 20070622
  Receipt Date: 20070610
  Transmission Date: 20071010
  Serious: No
  Sender: FDA-Public Use
  Company Number: PALADIN: P-PLA416-06-28

PATIENT
  Sex: Female

DRUGS (1)
  1. PLAN B [Suspect]
     Indication: CONTRACEPTION
     Dosage: UNKNOWN ORAL
     Route: 048
     Dates: start: 20070501, end: 20070501

REACTIONS (3)
  - ANAEMIA [None]
  - METRORRHAGIA [None]
  - VAGINAL HAEMORRHAGE [None]
